FAERS Safety Report 16698900 (Version 1)
Quarter: 2019Q3

REPORT INFORMATION
  Report Type: Spontaneous
  Country: US (occurrence: US)
  Receive Date: 20190813
  Receipt Date: 20190813
  Transmission Date: 20191004
  Serious: No
  Sender: FDA-Public Use
  Company Number: US-PERRIGO-18US009366

PATIENT
  Sex: Male
  Weight: 172.34 kg

DRUGS (1)
  1. LORATADINE. [Suspect]
     Active Substance: LORATADINE
     Indication: RHINITIS
     Dosage: 20 MG, BID PRN
     Route: 048

REACTIONS (1)
  - Overdose [Unknown]
